FAERS Safety Report 12695410 (Version 2)
Quarter: 2016Q3

REPORT INFORMATION
  Report Type: Report from Study
  Country: AU (occurrence: AU)
  Receive Date: 20160829
  Receipt Date: 20160830
  Transmission Date: 20161109
  Serious: Yes (Hospitalization)
  Sender: FDA-Public Use
  Company Number: AU-BRISTOL-MYERS SQUIBB COMPANY-BMS-2016-069869

PATIENT
  Age: 77 Year
  Sex: Male

DRUGS (5)
  1. IPILIMUMAB [Suspect]
     Active Substance: IPILIMUMAB
     Dosage: 261 UNK, TOTAL
     Route: 065
     Dates: start: 20160729, end: 20160729
  2. NIVOLUMAB [Suspect]
     Active Substance: NIVOLUMAB
     Dosage: 23.5 UNK, TOTAL
     Route: 065
     Dates: start: 20160819, end: 20160819
  3. IPILIMUMAB [Suspect]
     Active Substance: IPILIMUMAB
     Indication: MALIGNANT MELANOMA
     Dosage: 261 MG, UNK
     Route: 042
     Dates: start: 20160708, end: 20160708
  4. NIVOLUMAB [Suspect]
     Active Substance: NIVOLUMAB
     Indication: MALIGNANT MELANOMA
     Dosage: 87 MG, UNK
     Route: 042
     Dates: start: 20160708, end: 20160708
  5. NIVOLUMAB [Suspect]
     Active Substance: NIVOLUMAB
     Dosage: 87 UNK, TOTAL
     Route: 065
     Dates: start: 20160729, end: 20160729

REACTIONS (1)
  - Dehydration [Recovered/Resolved]

NARRATIVE: CASE EVENT DATE: 20160819
